FAERS Safety Report 25614163 (Version 1)
Quarter: 2025Q3

REPORT INFORMATION
  Report Type: Spontaneous
  Country: US (occurrence: US)
  Receive Date: 20250728
  Receipt Date: 20250728
  Transmission Date: 20251020
  Serious: Yes (Death, Hospitalization, Other)
  Sender: TWI PHARMACEUTICALS
  Company Number: US-TWI PHARMACEUTICAL, INC-20250701030

PATIENT
  Age: 48 Year
  Sex: Female

DRUGS (2)
  1. BUPROPION HYDROCHLORIDE XL [Suspect]
     Active Substance: BUPROPION HYDROCHLORIDE
     Indication: Product used for unknown indication
     Route: 048
  2. PROPRANOLOL [Concomitant]
     Active Substance: PROPRANOLOL HYDROCHLORIDE
     Indication: Product used for unknown indication
     Route: 048

REACTIONS (12)
  - Cardiogenic shock [Fatal]
  - Ventricular tachycardia [Fatal]
  - Intentional overdose [Fatal]
  - Electrocardiogram QRS complex prolonged [Fatal]
  - Self-injurious ideation [Fatal]
  - Lethargy [Unknown]
  - Seizure [Recovered/Resolved]
  - Bundle branch block left [Unknown]
  - Left ventricular dysfunction [Unknown]
  - Metabolic acidosis [Unknown]
  - Bundle branch block right [Unknown]
  - Toxicity to various agents [Unknown]
